FAERS Safety Report 5194438-5 (Version None)
Quarter: 2006Q4

REPORT INFORMATION
  Report Type: 
  Country: None (occurrence: None)
  Receive Date: 20061222
  Receipt Date: 20061218
  Transmission Date: 20070319
  Serious: Yes (Other)
  Sender: FDA-Public Use
  Company Number: 238192K06USA

PATIENT
  Age: 27 Year
  Sex: Female

DRUGS (3)
  1. REBIF [Suspect]
     Indication: MULTIPLE SCLEROSIS
     Dosage: 44 MCG, 3 IN 1 WEEKS, SUBCUTANEOUS
     Route: 058
     Dates: start: 20061106, end: 20061201
  2. BACLOFEN [Concomitant]
  3. BIRTH CONTROL PILL (ORAL CONTRACEPTIVE NOS) [Concomitant]

REACTIONS (10)
  - ABNORMAL BEHAVIOUR [None]
  - BALANCE DISORDER [None]
  - CONVULSION [None]
  - CRYING [None]
  - GAIT DISTURBANCE [None]
  - GLOSSITIS [None]
  - GLOSSODYNIA [None]
  - LOSS OF CONSCIOUSNESS [None]
  - PHARYNGOLARYNGEAL PAIN [None]
  - SELF-INJURIOUS IDEATION [None]
